FAERS Safety Report 8811542 (Version 1)
Quarter: 2012Q4

REPORT INFORMATION
  Report Type: 
  Country: TN (occurrence: TN)
  Receive Date: 20120927
  Receipt Date: 20120927
  Transmission Date: 20130627
  Serious: Yes (Death)
  Sender: FDA-Public Use
  Company Number: TN-SANOFI-AVENTIS-2012SA068626

PATIENT
  Age: 90 Year
  Sex: Female

DRUGS (7)
  1. PLAVIX [Suspect]
     Indication: ACUTE CORONARY SYNDROME
     Route: 048
     Dates: start: 20111110, end: 20120709
  2. ASPEGIC [Concomitant]
     Route: 048
     Dates: end: 20120709
  3. AVLOCARDYL [Concomitant]
     Route: 048
     Dates: end: 20120709
  4. CORVASAL [Concomitant]
     Route: 048
     Dates: end: 20120709
  5. TAHOR [Concomitant]
     Route: 048
     Dates: end: 20120709
  6. TENSOPRIL [Concomitant]
     Route: 048
     Dates: end: 20120709
  7. ZANIDIP [Concomitant]
     Route: 048
     Dates: end: 20120709

REACTIONS (2)
  - Embolic stroke [Fatal]
  - Coma [Fatal]
